FAERS Safety Report 9868929 (Version 1)
Quarter: 2014Q1

REPORT INFORMATION
  Report Type: Spontaneous
  Country: FR (occurrence: FR)
  Receive Date: 20140204
  Receipt Date: 20140204
  Transmission Date: 20141002
  Serious: Yes (Hospitalization)
  Sender: FDA-Public Use
  Company Number: FR-ROCHE-1342803

PATIENT
  Age: 51 Year
  Sex: Male

DRUGS (3)
  1. CELLCEPT [Suspect]
     Indication: PRODUCT USED FOR UNKNOWN INDICATION
     Route: 048
     Dates: start: 200106, end: 20010906
  2. BACTRIM FORTE [Suspect]
     Indication: PRODUCT USED FOR UNKNOWN INDICATION
     Route: 048
     Dates: end: 20010906
  3. MOPRAL (FRANCE) [Suspect]
     Indication: PRODUCT USED FOR UNKNOWN INDICATION
     Route: 048
     Dates: end: 20010906

REACTIONS (1)
  - Agranulocytosis [Recovered/Resolved]
